FAERS Safety Report 9241792 (Version 2)
Quarter: 2013Q3

REPORT INFORMATION
  Report Type: Report from Study
  Country: ZA (occurrence: ZA)
  Receive Date: 20130419
  Receipt Date: 20130716
  Transmission Date: 20140515
  Serious: Yes (Life-Threatening)
  Sender: FDA-Public Use
  Company Number: PHHY2013ZA037400

PATIENT
  Age: 60 Year
  Sex: Female

DRUGS (1)
  1. ACLASTA [Suspect]
     Indication: OSTEOPOROSIS
     Dosage: 5 MG/100ML
     Route: 042
     Dates: start: 2012

REACTIONS (14)
  - Feeling abnormal [Recovering/Resolving]
  - Incorrect drug administration duration [Unknown]
  - Eye swelling [Recovering/Resolving]
  - Movement disorder [Recovering/Resolving]
  - Abasia [Recovering/Resolving]
  - Sinusitis [Recovering/Resolving]
  - Bronchitis [Recovering/Resolving]
  - Back pain [Unknown]
  - Pyrexia [Recovering/Resolving]
  - Hyperhidrosis [Recovering/Resolving]
  - Pain [Recovering/Resolving]
  - Chills [Recovering/Resolving]
  - Flushing [Recovering/Resolving]
  - Cough [Unknown]
